FAERS Safety Report 6031628-3 (Version None)
Quarter: 2009Q1

REPORT INFORMATION
  Report Type: 
  Country: None (occurrence: None)
  Receive Date: 20090108
  Receipt Date: 20081230
  Transmission Date: 20090719
  Serious: Yes (Hospitalization, Other)
  Sender: FDA-Public Use
  Company Number: US-ELI_LILLY_AND_COMPANY-US200812006049

PATIENT
  Sex: Female

DRUGS (2)
  1. FORTEO [Suspect]
     Indication: OSTEOPOROSIS
     Dates: start: 20070701
  2. THYROID THERAPY [Concomitant]

REACTIONS (12)
  - BLOOD MAGNESIUM DECREASED [None]
  - BLOOD MAGNESIUM INCREASED [None]
  - FALL [None]
  - GASTROINTESTINAL HYPOMOTILITY [None]
  - INTESTINAL OBSTRUCTION [None]
  - LABORATORY TEST ABNORMAL [None]
  - MALAISE [None]
  - MUSCULAR WEAKNESS [None]
  - NAUSEA [None]
  - PAIN [None]
  - VOMITING [None]
  - WEIGHT DECREASED [None]
